FAERS Safety Report 7988413-2 (Version None)
Quarter: 2011Q4

REPORT INFORMATION
  Report Type: 
  Country: None (occurrence: None)
  Receive Date: 20111216
  Receipt Date: 20111209
  Transmission Date: 20120403
  Serious: Yes (Other)
  Sender: FDA-Public Use
  Company Number: JP-ROCHE-1022162

PATIENT
  Sex: Male

DRUGS (9)
  1. RIMATIL [Concomitant]
     Indication: RHEUMATOID ARTHRITIS
     Route: 048
     Dates: start: 20090804
  2. ACTEMRA [Suspect]
     Indication: RHEUMATOID ARTHRITIS
     Route: 041
     Dates: start: 20090817, end: 20101027
  3. RHEUMATREX [Concomitant]
     Indication: RHEUMATOID ARTHRITIS
     Route: 048
  4. PREDNISOLONE [Concomitant]
     Indication: RHEUMATOID ARTHRITIS
     Route: 048
     Dates: end: 20090716
  5. ACTEMRA [Suspect]
     Route: 041
     Dates: start: 20110203, end: 20110203
  6. PREDNISOLONE [Concomitant]
     Route: 048
     Dates: start: 20100129
  7. ACTEMRA [Suspect]
     Route: 041
     Dates: start: 20101215, end: 20101215
  8. PREDNISOLONE [Concomitant]
     Route: 048
     Dates: start: 20090717, end: 20100128
  9. AZULFIDINE [Concomitant]
     Indication: RHEUMATOID ARTHRITIS
     Route: 048
     Dates: start: 20090717, end: 20091013

REACTIONS (1)
  - TONSILLECTOMY [None]
